FAERS Safety Report 11310821 (Version 1)
Quarter: 2015Q3

REPORT INFORMATION
  Report Type: Spontaneous
  Country: PL (occurrence: PL)
  Receive Date: 20150726
  Receipt Date: 20150726
  Transmission Date: 20151125
  Serious: Yes (Hospitalization)
  Sender: FDA-Public Use
  Company Number: PL-TEVA-581490ISR

PATIENT
  Age: 1 Year
  Sex: Male

DRUGS (6)
  1. TACROLIMUS. [Suspect]
     Active Substance: TACROLIMUS
     Dosage: 2 MILLIGRAM DAILY; CURRENT DOSE
  2. PREDNISONE. [Concomitant]
     Active Substance: PREDNISONE
     Dosage: 10 MILLIGRAM DAILY; INITIAL DOSE
  3. MYCOPHENOLATE MOFETIL. [Suspect]
     Active Substance: MYCOPHENOLATE MOFETIL
     Dosage: 500 MILLIGRAM DAILY;
  4. CICLOSPORIN [Suspect]
     Active Substance: CYCLOSPORINE
  5. PREDNISONE. [Concomitant]
     Active Substance: PREDNISONE
     Dosage: 1 MILLIGRAM DAILY; CURRENT DOSE
  6. TACROLIMUS. [Suspect]
     Active Substance: TACROLIMUS
     Dosage: 4 MILLIGRAM DAILY; INITIAL DOSE

REACTIONS (6)
  - Oral disorder [Not Recovered/Not Resolved]
  - Hirsutism [Unknown]
  - Gingival hypertrophy [Unknown]
  - Dermatitis atopic [Unknown]
  - Diarrhoea [Unknown]
  - Hypochromic anaemia [Unknown]
